FAERS Safety Report 7071842-1 (Version None)
Quarter: 2010Q4

REPORT INFORMATION
  Report Type: 
  Country: None (occurrence: None)
  Receive Date: 20101029
  Receipt Date: 20100104
  Transmission Date: 20110411
  Serious: No
  Sender: FDA-Public Use
  Company Number: A0813625A

PATIENT
  Age: 58 Year
  Sex: Female

DRUGS (5)
  1. ADVAIR DISKUS 100/50 [Suspect]
     Indication: ASTHMA
     Dosage: 1PUFF TWICE PER DAY
     Route: 055
     Dates: start: 20070101
  2. VENTOLIN [Concomitant]
  3. FLEXERIL [Concomitant]
  4. HORMONE REPLACEMENT [Concomitant]
  5. ZANTAC [Concomitant]

REACTIONS (8)
  - APHONIA [None]
  - DRUG INEFFECTIVE [None]
  - DYSPHONIA [None]
  - INHALATION THERAPY [None]
  - MALAISE [None]
  - OROPHARYNGEAL PAIN [None]
  - PRODUCT QUALITY ISSUE [None]
  - PRODUCT TASTE ABNORMAL [None]
